FAERS Safety Report 4661619-6 (Version None)
Quarter: 2005Q2

REPORT INFORMATION
  Report Type: 
  Country: None (occurrence: None)
  Receive Date: 20050513
  Receipt Date: 20050509
  Transmission Date: 20051028
  Serious: Yes (Hospitalization)
  Sender: FDA-Public Use
  Company Number: 200511572FR

PATIENT
  Age: 76 Year
  Sex: Male

DRUGS (8)
  1. LASILIX [Suspect]
     Indication: HYPERTENSION
     Dosage: DOSE UNIT: UNITS
     Route: 048
     Dates: start: 20050401, end: 20050401
  2. TRIATEC [Suspect]
     Indication: CARDIAC FAILURE
     Route: 048
     Dates: start: 20050401, end: 20050401
  3. TRIATEC [Suspect]
     Indication: HYPERTENSION
     Route: 048
     Dates: start: 20050401, end: 20050401
  4. ALDACTONE [Suspect]
     Indication: CARDIAC FAILURE
     Dosage: DOSE UNIT: UNITS
     Route: 048
     Dates: end: 20050401
  5. SKENAN LP [Suspect]
     Indication: OSTEOARTHRITIS
     Route: 048
     Dates: start: 20050401, end: 20050403
  6. METFORMIN HCL [Concomitant]
     Indication: DIABETES MELLITUS
     Route: 048
     Dates: end: 20050401
  7. PREVISCAN [Concomitant]
     Route: 048
     Dates: end: 20050401
  8. FENOFIBRATE [Concomitant]
     Dosage: DOSE UNIT: UNITS
     Route: 048
     Dates: end: 20050401

REACTIONS (17)
  - BENIGN PROSTATIC HYPERPLASIA [None]
  - BLOOD GLUCOSE INCREASED [None]
  - BLOOD SODIUM DECREASED [None]
  - CONDITION AGGRAVATED [None]
  - DISEASE RECURRENCE [None]
  - DRUG INTERACTION [None]
  - DRUG INTOLERANCE [None]
  - FLUID INTAKE REDUCED [None]
  - GAMMA-GLUTAMYLTRANSFERASE INCREASED [None]
  - HAEMATOCRIT DECREASED [None]
  - HAEMOGLOBIN DECREASED [None]
  - HYPERKALAEMIA [None]
  - HYPERTENSION [None]
  - MALNUTRITION [None]
  - MOTOR DYSFUNCTION [None]
  - RENAL FAILURE ACUTE [None]
  - RESPIRATORY RATE INCREASED [None]
